FAERS Safety Report 9394809 (Version 2)
Quarter: 2013Q3

REPORT INFORMATION
  Report Type: Spontaneous
  Country: CH (occurrence: None)
  Receive Date: 20130705
  Receipt Date: 20130912
  Transmission Date: 20140515
  Serious: Yes (Hospitalization)
  Sender: FDA-Public Use
  Company Number: IMP_06730_2013

PATIENT
  Age: 58 Year
  Sex: Female

DRUGS (3)
  1. LETROZOLE (LETROZOLE) [Suspect]
     Indication: HORMONE THERAPY
  2. CISPLATIN (CISPLATIN) [Suspect]
     Indication: SMALL CELL LUNG CANCER
     Dosage: 25MG/M^2 ON DAYS 1-3
  3. ETOPOSIDE [Concomitant]

REACTIONS (4)
  - Thrombotic stroke [None]
  - Reading disorder [None]
  - Hemianopia homonymous [None]
  - Nuclear magnetic resonance imaging brain abnormal [None]
